FAERS Safety Report 5031767-X (Version None)
Quarter: 2006Q2

REPORT INFORMATION
  Report Type: 
  Country: None (occurrence: None)
  Receive Date: 20060616
  Receipt Date: 20060608
  Transmission Date: 20061013
  Serious: Yes (Death)
  Sender: FDA-Public Use
  Company Number: USA-2006-0024252

PATIENT
  Age: 85 Year
  Sex: Male
  Weight: 69.5 kg

DRUGS (2)
  1. MS CONTIN [Suspect]
     Indication: PAIN
     Dosage: 140 MG, DAILY, ORAL
     Route: 048
     Dates: start: 20051225, end: 20051226
  2. ACETAMINOPHEN [Suspect]

REACTIONS (6)
  - CALCINOSIS [None]
  - DRUG ADMINISTRATION ERROR [None]
  - GOITRE [None]
  - OVERDOSE [None]
  - PROSTATE CANCER [None]
  - THYROID NEOPLASM [None]
